FAERS Safety Report 14785296 (Version 1)
Quarter: 2018Q2

REPORT INFORMATION
  Report Type: Spontaneous
  Country: AU (occurrence: AU)
  Receive Date: 20180420
  Receipt Date: 20180420
  Transmission Date: 20180711
  Serious: Yes (Other)
  Sender: FDA-Public Use
  Company Number: AU-ASTRAZENECA-2016SE59445

PATIENT
  Age: 846 Month
  Sex: Male

DRUGS (3)
  1. BRILINTA [Suspect]
     Active Substance: TICAGRELOR
     Route: 048
     Dates: start: 201507
  2. FORXIGA [Suspect]
     Active Substance: DAPAGLIFLOZIN
     Route: 048
  3. ASPIRIN. [Concomitant]
     Active Substance: ASPIRIN
     Route: 065

REACTIONS (2)
  - Diabetic ketoacidosis [Unknown]
  - Haemoglobin decreased [Not Recovered/Not Resolved]

NARRATIVE: CASE EVENT DATE: 201702
